FAERS Safety Report 9683499 (Version 2)
Quarter: 2013Q4

REPORT INFORMATION
  Report Type: Other
  Country: GB (occurrence: GB)
  Receive Date: 20131112
  Receipt Date: 20131112
  Transmission Date: 20140711
  Serious: Yes (Life-Threatening, Hospitalization, Other)
  Sender: FDA-Public Use
  Company Number: GB-TAKEDA-THQ2013A05538

PATIENT
  Sex: 0

DRUGS (14)
  1. ZOTON [Suspect]
     Indication: DYSPEPSIA
     Dosage: 30 MG, QD
     Route: 048
     Dates: start: 20130525, end: 20130621
  2. METHOTREXATE [Suspect]
     Indication: ANAPLASTIC LARGE-CELL LYMPHOMA
     Dosage: 3900 MG, QD
     Route: 042
     Dates: start: 20130619, end: 20130619
  3. ONDANSETRON [Concomitant]
  4. LEVOMEPROMAZINE [Concomitant]
  5. PARACETAMOL [Concomitant]
  6. PIPERACILLIN/TAZOBACTAM [Concomitant]
  7. GENTAMICIN [Concomitant]
  8. CODEINE [Concomitant]
  9. MESNA [Concomitant]
  10. IFOSFAMIDE [Concomitant]
  11. CYTARABINE [Concomitant]
  12. DEXAMETHASONE [Concomitant]
  13. CALCIUM FOLINATE [Concomitant]
  14. ETOPOSIDE [Concomitant]

REACTIONS (6)
  - Renal failure acute [Recovered/Resolved]
  - Tubulointerstitial nephritis [Recovered/Resolved]
  - White blood cell count increased [Recovering/Resolving]
  - Abdominal pain [Recovered/Resolved]
  - Blood creatine increased [Recovered/Resolved]
  - Renal failure [Recovered/Resolved]
